FAERS Safety Report 17717934 (Version 2)
Quarter: 2020Q2

REPORT INFORMATION
  Report Type: Spontaneous
  Country: US (occurrence: US)
  Receive Date: 20200428
  Receipt Date: 20200504
  Transmission Date: 20200714
  Serious: Yes (Death, Other)
  Sender: FDA-Public Use
  Company Number: US-PFIZER INC-2019555825

PATIENT
  Age: 54 Year
  Sex: Female

DRUGS (2)
  1. PREMARIN [Suspect]
     Active Substance: ESTROGENS, CONJUGATED
     Dosage: 1.25 MG
  2. DETROL [Suspect]
     Active Substance: TOLTERODINE TARTRATE
     Dosage: 2 MG

REACTIONS (1)
  - Death [Fatal]
